FAERS Safety Report 21438646 (Version 1)
Quarter: 2022Q4

REPORT INFORMATION
  Report Type: Spontaneous
  Country: GB (occurrence: GB)
  Receive Date: 20221011
  Receipt Date: 20221011
  Transmission Date: 20230113
  Serious: No
  Sender: FDA-Public Use
  Company Number: None

PATIENT
  Age: 51 Year
  Sex: Female
  Weight: 99.9 kg

DRUGS (6)
  1. IBUPROFEN [Suspect]
     Active Substance: IBUPROFEN
     Indication: Rash
     Dosage: 1200 MILLIGRAM, OD (AFTER FOOD WHEN REQUIRED FOR PAIN/INFLAMMATION)
     Route: 048
     Dates: start: 20220704
  2. BENDROFLUMETHIAZIDE [Concomitant]
     Active Substance: BENDROFLUMETHIAZIDE
     Indication: Hypertension
     Dosage: 2.5 MILLIGRAM, OD
     Route: 065
     Dates: start: 20220609
  3. CODEINE [Concomitant]
     Active Substance: CODEINE
     Indication: Product used for unknown indication
     Dosage: UNK, QD, 1-2 FOUR TIMES A DAY
     Route: 065
     Dates: start: 20220706
  4. LORATADINE [Concomitant]
     Active Substance: LORATADINE
     Indication: Product used for unknown indication
     Dosage: UNK, OD
     Route: 065
     Dates: start: 20220706
  5. OMEPRAZOLE [Concomitant]
     Active Substance: OMEPRAZOLE
     Indication: Product used for unknown indication
     Dosage: 10 MILLIGRAM (WHEN REQUIRED)
     Route: 065
     Dates: start: 20220704
  6. ZELLETA [Concomitant]
     Indication: Product used for unknown indication
     Dosage: 75 MICROGRAM, OD
     Route: 065
     Dates: start: 20220509

REACTIONS (2)
  - Eye swelling [Recovering/Resolving]
  - Swollen tongue [Recovering/Resolving]

NARRATIVE: CASE EVENT DATE: 20220705
